FAERS Safety Report 9634671 (Version 1)
Quarter: 2013Q4

REPORT INFORMATION
  Report Type: Spontaneous
  Country: FR (occurrence: FR)
  Receive Date: 20131021
  Receipt Date: 20131021
  Transmission Date: 20140711
  Serious: Yes (Hospitalization, Other)
  Sender: FDA-Public Use
  Company Number: FR-009507513-1310FRA007795

PATIENT
  Age: 64 Year
  Sex: Female

DRUGS (7)
  1. VELMETIA [Suspect]
     Indication: TYPE 2 DIABETES MELLITUS
     Route: 048
  2. ATENOLOL [Suspect]
     Indication: PRODUCT USED FOR UNKNOWN INDICATION
  3. LEVOTHYROX [Concomitant]
  4. PREVISCAN [Concomitant]
  5. FUROSEMIDE [Concomitant]
  6. DIGOXIN [Concomitant]
     Dosage: UNK
     Dates: start: 20130705
  7. ZOLPIDEM TARTRATE [Concomitant]

REACTIONS (3)
  - Drug level above therapeutic [Recovered/Resolved]
  - Lactic acidosis [Recovered/Resolved]
  - Renal failure acute [Recovered/Resolved]
